FAERS Safety Report 23079486 (Version 1)
Quarter: 2023Q4

REPORT INFORMATION
  Report Type: Spontaneous
  Country: DE (occurrence: DE)
  Receive Date: 20231018
  Receipt Date: 20231018
  Transmission Date: 20240109
  Serious: Yes (Hospitalization, Other)
  Sender: FDA-Public Use
  Company Number: DE-FreseniusKabi-FK202316562

PATIENT
  Age: 82 Year
  Sex: Female

DRUGS (29)
  1. CARBOPLATIN [Suspect]
     Active Substance: CARBOPLATIN
     Indication: Non-small cell lung cancer
     Dosage: 114 MILLIGRAM
     Route: 041
     Dates: start: 20210216, end: 20210310
  2. NIVOLUMAB [Suspect]
     Active Substance: NIVOLUMAB
     Indication: Non-small cell lung cancer
     Dosage: 360 MILLIGRAM?FORM OF ADMIN. - SOLUTION
     Route: 042
     Dates: start: 20210216, end: 20210519
  3. IPILIMUMAB [Suspect]
     Active Substance: IPILIMUMAB
     Indication: Non-small cell lung cancer
     Dosage: 57 MILLIGRAM
     Route: 041
     Dates: start: 20210216, end: 20210519
  4. PACLITAXEL [Suspect]
     Active Substance: PACLITAXEL
     Indication: Non-small cell lung cancer
     Dosage: 100MG/M2 REDUCED BY 23 PERCENT?FREQUENCY TEXT: D1, D8, D15, AND 22?(100MG/M2 REDUCED BY 23 PERCENT)
     Route: 041
     Dates: start: 20210216, end: 20210310
  5. FOLIC ACID [Concomitant]
     Active Substance: FOLIC ACID
     Indication: Illness
     Dosage: FREQUENCY TEXT: NOT PROVIDED
     Route: 065
  6. FOLIC ACID [Concomitant]
     Active Substance: FOLIC ACID
     Dosage: FREQUENCY TEXT: NOT PROVIDED?FREQUENCY TEXT: FOR 3 DAYS?100 MILLIGRAM
     Route: 065
     Dates: start: 20210521
  7. FOLIC ACID [Concomitant]
     Active Substance: FOLIC ACID
     Dosage: FREQUENCY TEXT: NOT PROVIDED?FREQUENCY TEXT: FOR 4 DAYS?50 MILLIGRAM
     Route: 065
     Dates: start: 20210521
  8. FOLIC ACID [Concomitant]
     Active Substance: FOLIC ACID
     Dosage: FREQUENCY TEXT: NOT PROVIDED?WEEKLY REDUCTION TILL 30,15,10,5 MG.
     Route: 065
     Dates: start: 20210528
  9. PANTOZOL [Concomitant]
     Active Substance: PANTOPRAZOLE SODIUM
     Indication: Prophylaxis
     Dosage: FREQUENCY TEXT: NOT PROVIDED
     Route: 065
     Dates: start: 20210621
  10. PANTOPRAZOLE SODIUM [Concomitant]
     Active Substance: PANTOPRAZOLE SODIUM
     Indication: Product used for unknown indication
     Dosage: FREQUENCY TEXT: NOT PROVIDED
     Route: 065
  11. LERCANIDIPINE [Concomitant]
     Active Substance: LERCANIDIPINE
     Indication: Product used for unknown indication
     Dosage: FREQUENCY TEXT: NOT PROVIDED
     Route: 065
     Dates: start: 20210622
  12. ELIQUIS [Concomitant]
     Active Substance: APIXABAN
     Indication: Illness
     Dosage: FREQUENCY TEXT: NOT PROVIDED
     Route: 065
  13. PREDNISOLONE ACETATE [Concomitant]
     Active Substance: PREDNISOLONE ACETATE
     Indication: Product used for unknown indication
     Dosage: FREQUENCY TEXT: NOT PROVIDED
     Route: 065
     Dates: start: 20210623
  14. METAMIZOLE SODIUM [Concomitant]
     Active Substance: METAMIZOLE SODIUM
     Indication: Illness
     Dosage: FREQUENCY TEXT: NOT PROVIDED
     Route: 065
  15. LEVOTHYROXINE SODIUM [Concomitant]
     Active Substance: LEVOTHYROXINE SODIUM
     Indication: Illness
     Dosage: FREQUENCY TEXT: NOT PROVIDED
     Route: 065
     Dates: start: 20210622
  16. LEVOTHYROXINE SODIUM [Concomitant]
     Active Substance: LEVOTHYROXINE SODIUM
     Indication: Product used for unknown indication
     Dosage: FREQUENCY TEXT: NOT PROVIDED
     Route: 065
  17. METOPROLOL SUCCINATE [Concomitant]
     Active Substance: METOPROLOL SUCCINATE
     Indication: Product used for unknown indication
     Dosage: FREQUENCY TEXT: NOT PROVIDED
     Route: 065
  18. Ramipril I A Pharma [Concomitant]
     Indication: Illness
     Dosage: FREQUENCY TEXT: NOT PROVIDED
     Route: 065
  19. ASPIRIN [Concomitant]
     Active Substance: ASPIRIN
     Indication: Product used for unknown indication
     Dosage: FREQUENCY TEXT: NOT PROVIDED
     Route: 065
  20. AMLODIPINE BESYLATE [Concomitant]
     Active Substance: AMLODIPINE BESYLATE
     Indication: Illness
     Dosage: FREQUENCY TEXT: NOT PROVIDED
     Route: 065
  21. THIAMINE HYDROCHLORIDE [Concomitant]
     Active Substance: THIAMINE HYDROCHLORIDE
     Indication: Illness
     Dosage: FREQUENCY TEXT: NOT PROVIDED
     Route: 065
  22. FUROSEMIDE [Concomitant]
     Active Substance: FUROSEMIDE
     Indication: Illness
     Dosage: FREQUENCY TEXT: NOT PROVIDED
     Route: 065
  23. CHOLECALCIFEROL [Concomitant]
     Active Substance: CHOLECALCIFEROL
     Indication: Illness
     Dosage: FREQUENCY TEXT: NOT PROVIDED?DEKRISTOL 20000 I.E.
     Route: 065
  24. ATORVASTATIN [Concomitant]
     Active Substance: ATORVASTATIN
     Indication: Product used for unknown indication
     Dosage: FREQUENCY TEXT: NOT PROVIDED
     Route: 065
  25. HYDROCHLOROTHIAZIDE\OLMESARTAN MEDOXOMIL [Concomitant]
     Active Substance: HYDROCHLOROTHIAZIDE\OLMESARTAN MEDOXOMIL
     Indication: Product used for unknown indication
     Dosage: FREQUENCY TEXT: NOT PROVIDED
     Route: 065
  26. Simvastatin I A Pharma [Concomitant]
     Indication: Illness
     Dosage: FREQUENCY TEXT: NOT PROVIDED
     Route: 065
  27. PANCREATIN [Concomitant]
     Active Substance: PANCRELIPASE
     Indication: Product used for unknown indication
     Dosage: PANGROL 40000
     Route: 065
     Dates: start: 20210806
  28. PIPERACILLIN SODIUM\TAZOBACTAM SODIUM [Concomitant]
     Active Substance: PIPERACILLIN SODIUM\TAZOBACTAM SODIUM
     Indication: Product used for unknown indication
     Route: 065
     Dates: start: 20210313, end: 20210317
  29. PREDNISOLONE [Concomitant]
     Active Substance: PREDNISOLONE
     Indication: Product used for unknown indication
     Route: 065
     Dates: start: 20210521

REACTIONS (4)
  - Escherichia sepsis [Recovered/Resolved]
  - Pneumonitis [Recovered/Resolved]
  - Pancreatic failure [Recovered/Resolved]
  - Pancreatic failure [Recovered/Resolved]

NARRATIVE: CASE EVENT DATE: 20210312
